FAERS Safety Report 7910636-9 (Version None)
Quarter: 2011Q4

REPORT INFORMATION
  Report Type: 
  Country: None (occurrence: None)
  Receive Date: 20111111
  Receipt Date: 20111108
  Transmission Date: 20120403
  Serious: Yes (Hospitalization)
  Sender: FDA-Public Use
  Company Number: DE-AMGEN-DEUNI2011058249

PATIENT
  Age: 72 Year
  Sex: Male

DRUGS (1)
  1. ROMIPLOSTIM [Suspect]
     Indication: IDIOPATHIC THROMBOCYTOPENIC PURPURA
     Dosage: 110 MUG, QWK
     Route: 058
     Dates: start: 20100115

REACTIONS (1)
  - CAROTID ARTERY STENOSIS [None]
